FAERS Safety Report 10345711 (Version 1)
Quarter: 2014Q3

REPORT INFORMATION
  Report Type: Spontaneous
  Country: US (occurrence: US)
  Receive Date: 20140728
  Receipt Date: 20140728
  Transmission Date: 20150326
  Serious: No
  Sender: FDA-Public Use
  Company Number: US-GILEAD-2014-0109628

PATIENT
  Age: 52 Year
  Sex: Female

DRUGS (3)
  1. SOVALDI [Suspect]
     Active Substance: SOFOSBUVIR
     Dosage: 400 MG, QD
     Route: 048
     Dates: start: 20140701
  2. RIBASPHERE RIBAPAK [Concomitant]
     Active Substance: RIBAVIRIN
  3. SOVALDI [Suspect]
     Active Substance: SOFOSBUVIR
     Indication: HEPATITIS C
     Dosage: 400 MG, BID
     Route: 048
     Dates: start: 20140716, end: 20140718

REACTIONS (4)
  - Myalgia [Unknown]
  - Arthralgia [Unknown]
  - Overdose [Unknown]
  - Insomnia [Unknown]

NARRATIVE: CASE EVENT DATE: 20140701
